FAERS Safety Report 21449148 (Version 1)
Quarter: 2022Q4

REPORT INFORMATION
  Report Type: Spontaneous
  Country: US (occurrence: US)
  Receive Date: 20221013
  Receipt Date: 20221013
  Transmission Date: 20230113
  Serious: Yes (Death, Hospitalization, Other)
  Sender: FDA-Public Use
  Company Number: US-AMGEN-USASP2022174498

PATIENT

DRUGS (9)
  1. CINACALCET HYDROCHLORIDE [Suspect]
     Active Substance: CINACALCET HYDROCHLORIDE
     Indication: Hyperparathyroidism secondary
     Dosage: UNK
     Route: 065
  2. CINACALCET HYDROCHLORIDE [Suspect]
     Active Substance: CINACALCET HYDROCHLORIDE
     Indication: Hyperparathyroidism tertiary
  3. THYMOGLOBULIN [Concomitant]
     Active Substance: LAPINE T-LYMPHOCYTE IMMUNE GLOBULIN
  4. ALEMTUZUMAB [Concomitant]
     Active Substance: ALEMTUZUMAB
  5. TACROLIMUS [Concomitant]
     Active Substance: TACROLIMUS
  6. ALDESLEUKIN [Concomitant]
     Active Substance: ALDESLEUKIN
  7. CYCLOSPORINE [Concomitant]
     Active Substance: CYCLOSPORINE
  8. MYCOPHENOLIC ACID [Concomitant]
     Active Substance: MYCOPHENOLIC ACID
  9. AZATHIOPRINE [Concomitant]
     Active Substance: AZATHIOPRINE

REACTIONS (9)
  - Death [Fatal]
  - Acute kidney injury [Unknown]
  - Hungry bone syndrome [Unknown]
  - Complications of transplanted kidney [Unknown]
  - Unevaluable event [Unknown]
  - Transplant failure [Unknown]
  - Hypocalcaemia [Unknown]
  - Adverse reaction [Unknown]
  - Off label use [Unknown]
